FAERS Safety Report 17335183 (Version 8)
Quarter: 2020Q3

REPORT INFORMATION
  Report Type: Spontaneous
  Country: US (occurrence: US)
  Receive Date: 20200128
  Receipt Date: 20200806
  Transmission Date: 20201102
  Serious: Yes (Hospitalization, Other)
  Sender: FDA-Public Use
  Company Number: US-AKCEA THERAPEUTICS-2020IS001046

PATIENT
  Age: 55 Year
  Sex: Male

DRUGS (2)
  1. ISSD (INTEGRATED SYRINGE SAFETY DEVICE) [Suspect]
     Active Substance: DEVICE
  2. TEGSEDI [Suspect]
     Active Substance: INOTERSEN SODIUM
     Indication: HEREDITARY NEUROPATHIC AMYLOIDOSIS
     Route: 058
     Dates: start: 20191103, end: 2020

REACTIONS (7)
  - Nephrolithiasis [Unknown]
  - Hospitalisation [Unknown]
  - Glomerulonephritis [Unknown]
  - Kidney infection [Unknown]
  - Blood urine present [Unknown]
  - Thrombocytopenia [Unknown]
  - Urine protein/creatinine ratio increased [Recovered/Resolved]
